FAERS Safety Report 7928587-2 (Version None)
Quarter: 2011Q4

REPORT INFORMATION
  Report Type: 
  Country: None (occurrence: None)
  Receive Date: 20111118
  Receipt Date: 20111118
  Transmission Date: 20120403
  Serious: Yes (Other)
  Sender: FDA-Public Use
  Company Number: US-JNJFOC-20111006278

PATIENT
  Sex: Female
  Weight: 52.62 kg

DRUGS (11)
  1. ANTACIDS [Concomitant]
     Route: 065
  2. REMICADE [Suspect]
     Route: 042
     Dates: start: 20111012
  3. MULTIVITAMINS WITH IRON [Concomitant]
     Route: 065
  4. OMEPRAZOLE [Concomitant]
     Route: 065
  5. TPN [Concomitant]
     Indication: UNDERWEIGHT
     Route: 065
  6. FOLIC ACID [Concomitant]
     Route: 065
  7. VITAMIN B COMPLEX AND C WITH IRON [Concomitant]
     Route: 065
  8. ZOFRAN [Concomitant]
     Route: 048
  9. COLD MEDICINE NOS [Concomitant]
     Route: 065
  10. REMICADE [Suspect]
     Indication: CROHN'S DISEASE
     Route: 042
     Dates: start: 20110427
  11. ACETAMINOPHEN [Concomitant]
     Dosage: AS NEEDED
     Route: 065

REACTIONS (5)
  - URINARY TRACT INFECTION [None]
  - FLUSHING [None]
  - WEIGHT DECREASED [None]
  - INFUSION RELATED REACTION [None]
  - DYSPNOEA [None]
